FAERS Safety Report 7907666-X (Version None)
Quarter: 2011Q4

REPORT INFORMATION
  Report Type: 
  Country: None (occurrence: None)
  Receive Date: 20111110
  Receipt Date: 20111103
  Transmission Date: 20120403
  Serious: Yes (Life-Threatening)
  Sender: FDA-Public Use
  Company Number: FR-TEVA-308575ISR

PATIENT
  Sex: Female

DRUGS (8)
  1. ASPIRIN AND DIPYRIDAMOLE [Concomitant]
  2. BISOPROLOL FUMARATE [Concomitant]
  3. CELEBREX [Concomitant]
  4. REPAGLINIDE [Concomitant]
  5. LASIX [Concomitant]
  6. CEFTRIAXONE [Suspect]
     Route: 030
     Dates: start: 20111007, end: 20111007
  7. NITROGLYCERIN [Concomitant]
  8. IMOVANE [Concomitant]

REACTIONS (1)
  - ANGIOEDEMA [None]
